FAERS Safety Report 24121657 (Version 1)
Quarter: 2024Q3

REPORT INFORMATION
  Report Type: Spontaneous
  Country: US (occurrence: None)
  Receive Date: 20240720
  Receipt Date: 20240720
  Transmission Date: 20241016
  Serious: Yes (Other)
  Sender: Public
  Company Number: None

PATIENT
  Age: 80 Year
  Sex: Female
  Weight: 72 kg

DRUGS (11)
  1. CIPROFLOXACIN [Suspect]
     Active Substance: CIPROFLOXACIN
     Indication: Sinusitis
     Dosage: OTHER QUANTITY : 14 TABLET(S);?FREQUENCY : EVERY 12 HOURS;?
     Route: 048
     Dates: start: 20240712
  2. Thyroid meds [Concomitant]
  3. glaucoma [Concomitant]
  4. UNSPECIFIED INGREDIENT [Concomitant]
     Active Substance: UNSPECIFIED INGREDIENT
  5. UNSPECIFIED INGREDIENT [Concomitant]
     Active Substance: UNSPECIFIED INGREDIENT
  6. CALCIUM [Concomitant]
     Active Substance: CALCIUM
  7. PROBIOTICS NOS [Concomitant]
     Active Substance: PROBIOTICS NOS
  8. MELATONIN [Concomitant]
     Active Substance: MELATONIN
  9. COLLAGEN [Concomitant]
     Active Substance: COLLAGEN
  10. VITAMINS [Concomitant]
     Active Substance: VITAMINS
  11. MULTI MINERAL [Concomitant]

REACTIONS (7)
  - Insomnia [None]
  - Feeling abnormal [None]
  - Fatigue [None]
  - Disturbance in attention [None]
  - Asthenia [None]
  - Brain fog [None]
  - Depressed level of consciousness [None]

NARRATIVE: CASE EVENT DATE: 20240718
